FAERS Safety Report 23132643 (Version 2)
Quarter: 2023Q4

REPORT INFORMATION
  Report Type: Spontaneous
  Country: CN (occurrence: CN)
  Receive Date: 20231101
  Receipt Date: 20231106
  Transmission Date: 20240110
  Serious: Yes (Hospitalization)
  Sender: FDA-Public Use
  Company Number: CN-002147023-NVSC2023CN230799

PATIENT
  Age: 63 Year
  Sex: Female
  Weight: 58 kg

DRUGS (1)
  1. CARBAMAZEPINE [Suspect]
     Active Substance: CARBAMAZEPINE
     Indication: Trigeminal neuralgia
     Dosage: 0.200 G, QD (FOR 10 DAYS)
     Route: 048
     Dates: start: 20230909, end: 20230920

REACTIONS (15)
  - Erythema multiforme [Recovering/Resolving]
  - Papule [Unknown]
  - Erythema [Recovering/Resolving]
  - Skin exfoliation [Unknown]
  - Skin lesion [Recovering/Resolving]
  - Macule [Unknown]
  - Mouth ulceration [Recovered/Resolved]
  - Blister [Unknown]
  - Pruritus [Unknown]
  - Hyperpyrexia [Recovering/Resolving]
  - Pyrexia [Unknown]
  - Rash [Recovering/Resolving]
  - Maxillofacial pain [Unknown]
  - Asthenia [Not Recovered/Not Resolved]
  - Product dose omission issue [Unknown]

NARRATIVE: CASE EVENT DATE: 20230919
